FAERS Safety Report 20674872 (Version 2)
Quarter: 2022Q2

REPORT INFORMATION
  Report Type: Spontaneous
  Country: IT (occurrence: IT)
  Receive Date: 20220405
  Receipt Date: 20220612
  Transmission Date: 20220720
  Serious: Yes (Other)
  Sender: FDA-Public Use
  Company Number: IT-NOVARTISPH-NVSC2022IT075803

PATIENT
  Age: 35 Year
  Sex: Female

DRUGS (6)
  1. PACLITAXEL [Suspect]
     Active Substance: PACLITAXEL
     Indication: Invasive ductal breast carcinoma
     Dosage: 80 MG/M2, QW (TOTAL DOSE 130 MG)
     Route: 041
  2. BETAMETHASONE [Suspect]
     Active Substance: BETAMETHASONE
     Indication: Neonatal respiratory distress syndrome prophylaxis
     Dosage: 12 MG
     Route: 030
  3. UNSPECIFIED INGREDIENT [Suspect]
     Active Substance: UNSPECIFIED INGREDIENT
     Indication: Subclavian vein thrombosis
     Dosage: 6000 IU, BID
     Route: 065
  4. LEVOTHYROXINE [Suspect]
     Active Substance: LEVOTHYROXINE
     Indication: Hypothyroidism
     Dosage: 50 UG, QD (50 MCG/DIE)
     Route: 065
  5. POLYETHYLENE GLYCOLS [Suspect]
     Active Substance: POLYETHYLENE GLYCOLS
     Indication: Constipation
     Dosage: UNK
     Route: 065
  6. CARBOPLATIN [Suspect]
     Active Substance: CARBOPLATIN
     Indication: Invasive ductal breast carcinoma
     Dosage: AUC2 (TOTAL DOSE 300-380 MG)
     Route: 041

REACTIONS (3)
  - Premature delivery [Unknown]
  - Product use in unapproved indication [Unknown]
  - Maternal exposure during pregnancy [Unknown]
